FAERS Safety Report 7425822-4 (Version None)
Quarter: 2011Q2

REPORT INFORMATION
  Report Type: 
  Country: None (occurrence: None)
  Receive Date: 20110420
  Receipt Date: 20110412
  Transmission Date: 20111010
  Serious: Yes (Hospitalization, Other)
  Sender: FDA-Public Use
  Company Number: US-B.I. PHARMACEUTICALS,INC./RIDGEFIELD-2010-BP-13688BP

PATIENT
  Age: 74 Year
  Sex: Male

DRUGS (10)
  1. TRIAMTERENE AND HYDROCHLOROTHIAZIDE [Concomitant]
  2. METFORMIN [Concomitant]
  3. ASPIRIN [Concomitant]
  4. AGGRENOX [Suspect]
     Indication: TRANSIENT ISCHAEMIC ATTACK
  5. XANAX [Concomitant]
  6. SIMVASTATIN [Concomitant]
  7. ZANTAC [Concomitant]
  8. AGGRENOX [Suspect]
     Indication: CEREBROVASCULAR ACCIDENT PROPHYLAXIS
     Dosage: 50/400MG
     Route: 048
     Dates: start: 20070101, end: 20101129
  9. LOPRESSOR [Concomitant]
  10. MESTINON [Concomitant]

REACTIONS (16)
  - ASTHENIA [None]
  - LIVER DISORDER [None]
  - ABDOMINAL PAIN UPPER [None]
  - INTESTINAL FUNCTIONAL DISORDER [None]
  - MYASTHENIA GRAVIS [None]
  - DYSPNOEA [None]
  - THYMUS DISORDER [None]
  - ABDOMINAL DISCOMFORT [None]
  - NECK PAIN [None]
  - DIPLOPIA [None]
  - DIZZINESS [None]
  - DEHYDRATION [None]
  - LUNG DISORDER [None]
  - LUNG NEOPLASM MALIGNANT [None]
  - FATIGUE [None]
  - HEPATIC NEOPLASM MALIGNANT [None]
